FAERS Safety Report 8359525-9 (Version None)
Quarter: 2012Q2

REPORT INFORMATION
  Report Type: 
  Country: None (occurrence: None)
  Receive Date: 20120515
  Receipt Date: 20120504
  Transmission Date: 20120825
  Serious: Yes (Life-Threatening, Hospitalization)
  Sender: FDA-Public Use
  Company Number: IT-MPIJNJ-2012-02108

PATIENT

DRUGS (8)
  1. CYCLOPHOSPHAMIDE [Suspect]
     Indication: MULTIPLE MYELOMA
     Dosage: 500 MG/M2, UNK
     Route: 042
     Dates: start: 20120117, end: 20120320
  2. OPIUM/NALOXONE TAB [Concomitant]
     Indication: ASTRINGENT THERAPY
     Dosage: UNK
     Route: 048
     Dates: start: 20120117
  3. PURSENNID                          /00142207/ [Concomitant]
     Dosage: UNK
     Route: 048
     Dates: start: 20120117
  4. VELCADE [Suspect]
     Indication: MULTIPLE MYELOMA
     Dosage: 1 MG/M2, UNK
     Route: 042
     Dates: start: 20120117, end: 20120320
  5. DEXAMETHASONE [Suspect]
     Indication: MULTIPLE MYELOMA
     Dosage: 40 MG, UNK
     Route: 048
     Dates: start: 20120117, end: 20120318
  6. LAEVOLAC [Concomitant]
     Indication: ASTRINGENT THERAPY
     Dosage: UNK
     Route: 048
     Dates: start: 20120117
  7. PLASIL                             /00041901/ [Concomitant]
     Dosage: UNK
     Route: 048
     Dates: start: 20120117
  8. ANTRA                              /00661201/ [Concomitant]
     Dosage: UNK
     Route: 048
     Dates: start: 20120117

REACTIONS (1)
  - DIVERTICULAR PERFORATION [None]
